FAERS Safety Report 7123757-8 (Version None)
Quarter: 2010Q4

REPORT INFORMATION
  Report Type: 
  Country: None (occurrence: None)
  Receive Date: 20101125
  Receipt Date: 20101112
  Transmission Date: 20110411
  Serious: No
  Sender: FDA-Public Use
  Company Number: PHHY2010US70194

PATIENT
  Sex: Female
  Weight: 154 kg

DRUGS (6)
  1. GLEEVEC [Suspect]
     Indication: CHRONIC MYELOID LEUKAEMIA
     Dosage: QD
     Route: 048
     Dates: start: 20100310, end: 20100313
  2. GLEEVEC [Suspect]
     Dosage: UNK
     Route: 048
     Dates: start: 20100526, end: 20100601
  3. TASIGNA [Suspect]
     Route: 048
  4. SPRYCEL [Suspect]
     Indication: CHRONIC MYELOID LEUKAEMIA
  5. SOMA [Concomitant]
     Dosage: 350 MG, QD
     Route: 048
     Dates: start: 20100129
  6. LISINOPRIL [Concomitant]
     Indication: BLOOD PRESSURE INCREASED
     Dosage: 20 MG, QD
     Route: 048
     Dates: start: 20100129

REACTIONS (5)
  - ANXIETY [None]
  - DERMATITIS [None]
  - DRUG INTOLERANCE [None]
  - FLUSHING [None]
  - RASH [None]
